FAERS Safety Report 6433452-6 (Version None)
Quarter: 2009Q4

REPORT INFORMATION
  Report Type: 
  Country: None (occurrence: None)
  Receive Date: 20091106
  Receipt Date: 20091106
  Transmission Date: 20100525
  Serious: Yes (Hospitalization, Other)
  Sender: FDA-Public Use
  Company Number: None

PATIENT
  Sex: Female
  Weight: 71.2147 kg

DRUGS (2)
  1. TIZANIDINE HCL [Suspect]
     Indication: PERIPHERAL NERVE INJURY
     Dosage: 1 TABLET 3X PER DAY, PRN PO
     Route: 048
     Dates: start: 20081005, end: 20090601
  2. SOMA [Suspect]

REACTIONS (5)
  - ABNORMAL BEHAVIOUR [None]
  - AMNESIA [None]
  - CONFUSIONAL STATE [None]
  - DYSARTHRIA [None]
  - LOSS OF EMPLOYMENT [None]
